FAERS Safety Report 13520867 (Version 3)
Quarter: 2017Q2

REPORT INFORMATION
  Report Type: Spontaneous
  Country: BR (occurrence: BR)
  Receive Date: 20170508
  Receipt Date: 20170512
  Transmission Date: 20170830
  Serious: Yes (Hospitalization, Other)
  Sender: FDA-Public Use
  Company Number: BR-009507513-1705BRA000501

PATIENT
  Sex: Female
  Weight: 73 kg

DRUGS (2)
  1. NUVARING [Suspect]
     Active Substance: ETHINYL ESTRADIOL\ETONOGESTREL
     Dosage: VAGINAL RING, USE FOR 3 WEEKS AND 2 DAYS FOR FREE CONTRACEPTIVE INTERVAL
     Route: 067
     Dates: start: 2011
  2. NUVARING [Suspect]
     Active Substance: ETHINYL ESTRADIOL\ETONOGESTREL
     Indication: CONTRACEPTION
     Dosage: VAGINAL RING, USE FOR 3 WEEKS AND 2 DAYS FOR FREE CONTRACEPTIVE INTERVAL
     Route: 067
     Dates: start: 2002, end: 2009

REACTIONS (6)
  - Amenorrhoea [Recovered/Resolved]
  - Inappropriate schedule of drug administration [Unknown]
  - Thyroid cancer [Unknown]
  - Menstrual disorder [Not Recovered/Not Resolved]
  - Premenstrual syndrome [Not Recovered/Not Resolved]
  - Inappropriate schedule of drug administration [Unknown]

NARRATIVE: CASE EVENT DATE: 2002
